FAERS Safety Report 8115223-8 (Version None)
Quarter: 2012Q1

REPORT INFORMATION
  Report Type: 
  Country: None (occurrence: None)
  Receive Date: 20120201
  Receipt Date: 20120123
  Transmission Date: 20120608
  Serious: Yes (Other)
  Sender: FDA-Public Use
  Company Number: 2012MA001189

PATIENT
  Age: 74 Year
  Sex: Male

DRUGS (2)
  1. FEVERALL [Suspect]
     Indication: ANALGESIC THERAPY
     Dosage: 2 GM; QD;
  2. WARFARIN SODIUM [Suspect]
     Indication: ATRIAL FIBRILLATION
     Dosage: 5 MG; QD;

REACTIONS (4)
  - INTERNATIONAL NORMALISED RATIO INCREASED [None]
  - COAGULATION FACTOR VII LEVEL DECREASED [None]
  - DRUG INTERACTION [None]
  - COAGULATION FACTOR X LEVEL DECREASED [None]
